FAERS Safety Report 19897262 (Version 2)
Quarter: 2021Q4

REPORT INFORMATION
  Report Type: Spontaneous
  Country: US (occurrence: US)
  Receive Date: 20210930
  Receipt Date: 20211005
  Transmission Date: 20220303
  Serious: No
  Sender: FDA-Public Use
  Company Number: US-HETERO-HET2021US01812

PATIENT

DRUGS (1)
  1. VENLAFAXINE [Suspect]
     Active Substance: VENLAFAXINE HYDROCHLORIDE
     Indication: Fibromyalgia
     Dosage: 37.5 MILLIGRAM, QD
     Route: 065

REACTIONS (5)
  - Emotional distress [Unknown]
  - Feeling drunk [Unknown]
  - Product substitution issue [Unknown]
  - Dizziness [Unknown]
  - Hypertension [Unknown]
